FAERS Safety Report 6545521-0 (Version None)
Quarter: 2010Q1

REPORT INFORMATION
  Report Type: 
  Country: None (occurrence: None)
  Receive Date: 20100121
  Receipt Date: 20100111
  Transmission Date: 20100710
  Serious: Yes (Hospitalization)
  Sender: FDA-Public Use
  Company Number: FR-PFIZER INC-2010003676

PATIENT
  Age: 77 Year
  Sex: Male

DRUGS (10)
  1. CAMPTOSAR [Suspect]
     Dosage: UNK
     Route: 042
     Dates: start: 20090106
  2. FLUOROURACIL [Suspect]
     Dosage: UNK
     Route: 042
     Dates: start: 20090106
  3. ELOXATIN [Suspect]
     Dosage: UNK
     Route: 042
     Dates: start: 20090106
  4. AVASTIN [Concomitant]
     Dosage: UNK
     Route: 042
     Dates: start: 20090106
  5. INIPOMP [Concomitant]
  6. ORAMORPH SR [Concomitant]
  7. TANAKAN [Concomitant]
  8. PAROXETINE HCL [Concomitant]
  9. VASTAREL [Concomitant]
  10. GRANOCYTE [Concomitant]

REACTIONS (3)
  - ATRIAL FIBRILLATION [None]
  - DIARRHOEA [None]
  - PANCYTOPENIA [None]
